FAERS Safety Report 14946478 (Version 1)
Quarter: 2018Q2

REPORT INFORMATION
  Report Type: Report from Study
  Country: CO (occurrence: CO)
  Receive Date: 20180529
  Receipt Date: 20180529
  Transmission Date: 20180711
  Serious: Yes (Death, Hospitalization, Other)
  Sender: FDA-Public Use
  Company Number: CO-ASTELLAS-2017US007828

PATIENT
  Age: 33 Year
  Sex: Male
  Weight: 52 kg

DRUGS (5)
  1. MYCOPHENOLATE [Concomitant]
     Active Substance: MYCOPHENOLIC ACID
     Indication: RENAL TRANSPLANT
     Route: 048
  2. TACROLIMUS. [Suspect]
     Active Substance: TACROLIMUS
     Indication: RENAL TRANSPLANT
     Route: 048
     Dates: start: 20081110
  3. RANITIDINE. [Concomitant]
     Active Substance: RANITIDINE
     Indication: GASTRITIS
     Route: 048
  4. ENALAPRIL [Concomitant]
     Active Substance: ENALAPRIL
     Indication: BLOOD PRESSURE ABNORMAL
     Route: 048
  5. PREDNISOLONE. [Concomitant]
     Active Substance: PREDNISOLONE
     Indication: RENAL TRANSPLANT
     Route: 048

REACTIONS (12)
  - Diarrhoea [Fatal]
  - Renal failure [Unknown]
  - Kidney transplant rejection [Unknown]
  - Weight decreased [Unknown]
  - Blood creatinine increased [Recovering/Resolving]
  - Meningitis [Unknown]
  - Infection [Unknown]
  - Respiratory arrest [Fatal]
  - Decreased immune responsiveness [Unknown]
  - Vomiting [Fatal]
  - Dehydration [Unknown]
  - Drug level decreased [Not Recovered/Not Resolved]

NARRATIVE: CASE EVENT DATE: 20170209
